FAERS Safety Report 21303860 (Version 1)
Quarter: 2022Q3

REPORT INFORMATION
  Report Type: Spontaneous
  Country: US (occurrence: None)
  Receive Date: 20220907
  Receipt Date: 20220907
  Transmission Date: 20221027
  Serious: No
  Sender: FDA-Public Use
  Company Number: None

PATIENT
  Age: 41 Year
  Sex: Female
  Weight: 127.01 kg

DRUGS (1)
  1. EVUSHELD [Suspect]
     Active Substance: CILGAVIMAB\TIXAGEVIMAB
     Dosage: FREQUENCY : ONCE;?
     Route: 030

REACTIONS (3)
  - Chest pain [None]
  - Nausea [None]
  - Dizziness [None]

NARRATIVE: CASE EVENT DATE: 20220829
